FAERS Safety Report 5404313-6 (Version None)
Quarter: 2007Q3

REPORT INFORMATION
  Report Type: 
  Country: None (occurrence: None)
  Receive Date: 20070713
  Receipt Date: 20061018
  Transmission Date: 20080115
  Serious: Yes (Hospitalization)
  Sender: FDA-Public Use
  Company Number: REM_00288_2006

PATIENT
  Age: 44 Year
  Sex: Female
  Weight: 58.2 kg

DRUGS (1)
  1. REMODULIN [Suspect]
     Indication: PULMONARY HYPERTENSION
     Dosage: 72 NG/KG/MIN CONTINUOUS SC
     Route: 058

REACTIONS (9)
  - BACK PAIN [None]
  - CARDIOGENIC SHOCK [None]
  - CATHETER SITE DISCHARGE [None]
  - INFUSION SITE PAIN [None]
  - INFUSION SITE SWELLING [None]
  - THYROIDITIS [None]
  - WEIGHT DECREASED [None]
  - WOUND INFECTION BACTERIAL [None]
  - WOUND INFECTION STAPHYLOCOCCAL [None]
